FAERS Safety Report 14231791 (Version 1)
Quarter: 2017Q4

REPORT INFORMATION
  Report Type: Report from Study
  Country: US (occurrence: US)
  Receive Date: 20171128
  Receipt Date: 20171128
  Transmission Date: 20180321
  Serious: Yes (Other)
  Sender: FDA-Public Use
  Company Number: US-GILEAD-2017-0294510

PATIENT
  Age: 73 Year
  Sex: Female

DRUGS (2)
  1. IDELALISIB [Suspect]
     Active Substance: IDELALISIB
     Dosage: 100 MG BID X 3DAYS, 1 DAY OFF, REPEAT
     Route: 048
     Dates: start: 201706
  2. IDELALISIB [Suspect]
     Active Substance: IDELALISIB
     Indication: CHRONIC LYMPHOCYTIC LEUKAEMIA
     Dosage: 100 MG, BID
     Route: 048
     Dates: start: 20150527, end: 20171121

REACTIONS (5)
  - Disease progression [Unknown]
  - Cough [Unknown]
  - Upper respiratory tract infection [Unknown]
  - Intentional product misuse [Unknown]
  - Chronic sinusitis [Unknown]
